FAERS Safety Report 8537465-X (Version None)
Quarter: 2012Q3

REPORT INFORMATION
  Report Type: 
  Country: None (occurrence: None)
  Receive Date: 20120725
  Receipt Date: 20120719
  Transmission Date: 20120928
  Serious: Yes (Life-Threatening, Hospitalization, Other)
  Sender: FDA-Public Use
  Company Number: AU-ROXANE LABORATORIES, INC.-2012-RO-01568RO

PATIENT
  Age: 32 Year
  Sex: Female

DRUGS (2)
  1. AZATHIOPRINE [Suspect]
     Indication: COLITIS ULCERATIVE
     Dosage: 100 MG
  2. MESALAMINE [Suspect]
     Indication: COLITIS ULCERATIVE
     Route: 054

REACTIONS (6)
  - CYTOMEGALOVIRUS VIRAEMIA [None]
  - RESPIRATORY FAILURE [None]
  - RESPIRATORY DISTRESS [None]
  - HISTIOCYTOSIS HAEMATOPHAGIC [None]
  - PNEUMONIA [None]
  - PNEUMONITIS [None]
